FAERS Safety Report 13010310 (Version 8)
Quarter: 2019Q4

REPORT INFORMATION
  Report Type: Report from Study
  Country: FR (occurrence: FR)
  Receive Date: 20161208
  Receipt Date: 20191129
  Transmission Date: 20200122
  Serious: Yes (Hospitalization, Other)
  Sender: FDA-Public Use
  Company Number: PHHY2015FR024917

PATIENT
  Age: 41 Year
  Sex: Male
  Weight: 76 kg

DRUGS (26)
  1. CERTICAN [Suspect]
     Active Substance: EVEROLIMUS
     Indication: LIVER TRANSPLANT
     Dosage: 1 MG, BID
     Route: 048
     Dates: start: 20130819
  2. CERTICAN [Suspect]
     Active Substance: EVEROLIMUS
     Dosage: 2 MG, QD
     Route: 065
     Dates: start: 20150116, end: 20150904
  3. CERTICAN [Suspect]
     Active Substance: EVEROLIMUS
     Dosage: 2.5 MG, QD
     Route: 048
     Dates: start: 20141010, end: 20141011
  4. MYFORTIC [Suspect]
     Active Substance: MYCOPHENOLATE SODIUM
     Dosage: 720 MG, QD
     Route: 048
     Dates: start: 20141212
  5. MYFORTIC [Suspect]
     Active Substance: MYCOPHENOLATE SODIUM
     Dosage: 1440 MG, QD
     Route: 048
     Dates: end: 20150115
  6. CERTICAN [Suspect]
     Active Substance: EVEROLIMUS
     Dosage: 2 MG, QD
     Route: 048
     Dates: start: 20141014, end: 20141019
  7. CERTICAN [Suspect]
     Active Substance: EVEROLIMUS
     Dosage: 1.5 MG, QD
     Route: 048
     Dates: start: 20141020, end: 20141030
  8. CERTICAN [Suspect]
     Active Substance: EVEROLIMUS
     Dosage: 1 MG, QD
     Route: 048
     Dates: start: 20141205, end: 20150115
  9. CERTICAN [Suspect]
     Active Substance: EVEROLIMUS
     Dosage: 3 MG, QD
     Route: 048
     Dates: start: 20140104, end: 20141009
  10. CERTICAN [Suspect]
     Active Substance: EVEROLIMUS
     Dosage: 1.5 MG, QD
     Route: 048
     Dates: start: 20141202, end: 20141204
  11. ADVAGRAF [Concomitant]
     Active Substance: TACROLIMUS
     Dosage: 2.5 MG, QD (1-0-0)
     Route: 065
     Dates: start: 20160128
  12. MYFORTIC [Suspect]
     Active Substance: MYCOPHENOLATE SODIUM
     Indication: IMMUNOSUPPRESSANT DRUG THERAPY
     Dosage: 720 MG, QD
     Route: 048
  13. MYFORTIC [Suspect]
     Active Substance: MYCOPHENOLATE SODIUM
     Dosage: 1440 MG, QD
     Route: 048
     Dates: start: 20130830, end: 20141211
  14. MYFORTIC [Suspect]
     Active Substance: MYCOPHENOLATE SODIUM
     Dosage: 360 MG, BID (1-0-1)
     Route: 048
     Dates: start: 20150116
  15. PROGRAF [Concomitant]
     Active Substance: TACROLIMUS
     Indication: PRODUCT USED FOR UNKNOWN INDICATION
     Dosage: 4 MG, QD
     Route: 065
     Dates: start: 20150905, end: 20150929
  16. INEXIUM [Concomitant]
     Active Substance: ESOMEPRAZOLE
     Indication: PRODUCT USED FOR UNKNOWN INDICATION
     Dosage: 40 OT, QD (1-0-0)
     Route: 065
  17. CERTICAN [Suspect]
     Active Substance: EVEROLIMUS
     Indication: IMMUNOSUPPRESSANT DRUG THERAPY
     Dosage: 1.5 MG, QD
     Route: 048
  18. MYFORTIC [Suspect]
     Active Substance: MYCOPHENOLATE SODIUM
     Indication: LIVER TRANSPLANT
     Dosage: 360 MG, BID
     Route: 048
     Dates: start: 20130724
  19. MYFORTIC [Suspect]
     Active Substance: MYCOPHENOLATE SODIUM
     Dosage: 560 MG, BID
     Route: 065
  20. PARACETAMOL [Concomitant]
     Active Substance: ACETAMINOPHEN
     Indication: PRODUCT USED FOR UNKNOWN INDICATION
     Dosage: UNK UNK, PRN
     Route: 065
  21. ADVAGRAF [Concomitant]
     Active Substance: TACROLIMUS
     Dosage: 2.5 MG, QD
     Route: 048
     Dates: start: 20151009, end: 20160125
  22. PROGRAF [Concomitant]
     Active Substance: TACROLIMUS
     Dosage: 8 MG, QD
     Route: 065
     Dates: start: 20150930, end: 20151005
  23. ATENOLOL. [Concomitant]
     Active Substance: ATENOLOL
     Indication: PRODUCT USED FOR UNKNOWN INDICATION
     Dosage: 0.5 DF (100 OT. 1/2-0-1/2)), BID
     Route: 065
  24. ADVAGRAF [Concomitant]
     Active Substance: TACROLIMUS
     Indication: PRODUCT USED FOR UNKNOWN INDICATION
     Dosage: 2 MG, QD
     Route: 065
     Dates: start: 20151007, end: 20151008
  25. CERTICAN [Suspect]
     Active Substance: EVEROLIMUS
     Dosage: 2 MG, QD
     Route: 048
     Dates: start: 20141031, end: 20141201
  26. ADVAGRAF [Concomitant]
     Active Substance: TACROLIMUS
     Dosage: 4 MG, QD
     Route: 065
     Dates: start: 20160126, end: 20160127

REACTIONS (34)
  - Pancreatitis [Unknown]
  - Asthenia [Unknown]
  - Cholestasis [Unknown]
  - Cholangitis [Recovered/Resolved]
  - Cholangitis [Recovered/Resolved]
  - Vomiting [Recovered/Resolved]
  - Pneumonia klebsiella [Unknown]
  - Liver abscess [Recovered/Resolved]
  - Duodenal perforation [Recovered/Resolved]
  - Liver abscess [Recovered/Resolved]
  - Chills [Unknown]
  - Duodenal perforation [Not Recovered/Not Resolved]
  - Pyrexia [Recovered/Resolved]
  - Inflammation [Recovered/Resolved]
  - Chromaturia [Recovered/Resolved]
  - Abdominal pain [Recovered/Resolved]
  - Pyrexia [Not Recovered/Not Resolved]
  - Inflammation [Recovered/Resolved]
  - Bacterial sepsis [Unknown]
  - Back pain [Recovered/Resolved]
  - Anastomotic stenosis [Recovered/Resolved]
  - Ascites [Unknown]
  - Pneumobilia [Unknown]
  - Influenza [Recovered/Resolved]
  - Cell death [Recovered/Resolved]
  - Hepatocellular injury [Unknown]
  - Night sweats [Recovered/Resolved]
  - Cell death [Recovered/Resolved]
  - Diarrhoea [Recovered/Resolved]
  - Liver disorder [Recovered/Resolved]
  - Biliary tract infection [Recovered/Resolved]
  - Headache [Not Recovered/Not Resolved]
  - Liver abscess [Recovered/Resolved]
  - Peritonitis bacterial [Recovered/Resolved]

NARRATIVE: CASE EVENT DATE: 20140123
